FAERS Safety Report 8959899 (Version 1)
Quarter: 2012Q4

REPORT INFORMATION
  Report Type: 
  Country: US (occurrence: US)
  Receive Date: 20121211
  Receipt Date: 20121211
  Transmission Date: 20130627
  Serious: No
  Sender: FDA-Public Use
  Company Number: US-B.I. PHARMACEUTICALS,INC./RIDGEFIELD-2012-BI-02425BP

PATIENT
  Sex: Male
  Weight: 95 kg

DRUGS (1)
  1. PRADAXA [Suspect]
     Indication: CARDIAC DISORDER
     Dosage: 300 mg
     Route: 048
     Dates: start: 201112, end: 20121130

REACTIONS (3)
  - Arthralgia [Not Recovered/Not Resolved]
  - Arthralgia [Not Recovered/Not Resolved]
  - Pain in extremity [Not Recovered/Not Resolved]
